FAERS Safety Report 7259995-3 (Version None)
Quarter: 2011Q1

REPORT INFORMATION
  Report Type: 
  Country: None (occurrence: None)
  Receive Date: 20110130
  Receipt Date: 20101129
  Transmission Date: 20110831
  Serious: No
  Sender: FDA-Public Use
  Company Number: US-ABBOTT-10P-163-0679073-00

PATIENT
  Sex: Male

DRUGS (6)
  1. FLEXERIL [Concomitant]
     Indication: PRODUCT USED FOR UNKNOWN INDICATION
  2. VICODIN [Concomitant]
     Indication: PAIN
  3. HUMIRA [Suspect]
     Indication: ANKYLOSING SPONDYLITIS
     Dates: start: 20101018
  4. TRAZODONE HCL [Suspect]
     Indication: INSOMNIA
     Dates: end: 20101001
  5. TRILEPTAL [Concomitant]
     Indication: PRODUCT USED FOR UNKNOWN INDICATION
  6. HYDROCODONE [Concomitant]
     Indication: PAIN
     Dosage: PRN; TAKES ONLY ABOUT 3 A WEEK

REACTIONS (8)
  - DIZZINESS [None]
  - INCORRECT DOSE ADMINISTERED [None]
  - FATIGUE [None]
  - DEVICE MALFUNCTION [None]
  - BACK PAIN [None]
  - RASH PRURITIC [None]
  - BLOOD PRESSURE DECREASED [None]
  - RASH PAPULAR [None]
